FAERS Safety Report 5573576-9 (Version None)
Quarter: 2007Q4

REPORT INFORMATION
  Report Type: 
  Country: None (occurrence: None)
  Receive Date: 20071220
  Receipt Date: 20071214
  Transmission Date: 20080405
  Serious: Yes (Other)
  Sender: FDA-Public Use
  Company Number: 2007337740

PATIENT
  Age: 61 Year
  Sex: Female

DRUGS (2)
  1. SUDAFED S.A. [Suspect]
     Dosage: 2 PILLS, ORAL
     Route: 048
     Dates: start: 20070601, end: 20071214
  2. AMITRIPTYLINE HCL [Concomitant]

REACTIONS (4)
  - ASTHENIA [None]
  - BLOOD PRESSURE INCREASED [None]
  - DIZZINESS [None]
  - HEADACHE [None]
